FAERS Safety Report 11518774 (Version 1)
Quarter: 2015Q3

REPORT INFORMATION
  Report Type: Spontaneous
  Country: US (occurrence: US)
  Receive Date: 20150917
  Receipt Date: 20150917
  Transmission Date: 20151125
  Serious: No
  Sender: FDA-Public Use
  Company Number: US-TARO-2014TAR00248

PATIENT
  Sex: Female

DRUGS (2)
  1. CLOTRIMAZOLE TOPICAL SOLUTION USP 1% [Suspect]
     Active Substance: CLOTRIMAZOLE
     Dosage: UNK UNK, ONCE
     Route: 045
     Dates: start: 20140814, end: 20140814
  2. UNSPECIFIED NASAL SPRAY [Concomitant]
     Active Substance: UNSPECIFIED INGREDIENT

REACTIONS (2)
  - Incorrect route of drug administration [Unknown]
  - Nasal discomfort [Recovered/Resolved]

NARRATIVE: CASE EVENT DATE: 20140814
